FAERS Safety Report 11567052 (Version 3)
Quarter: 2015Q4

REPORT INFORMATION
  Report Type: Spontaneous
  Country: US (occurrence: US)
  Receive Date: 20150916
  Receipt Date: 20151104
  Transmission Date: 20160304
  Serious: No
  Sender: FDA-Public Use
  Company Number: US-ELI_LILLY_AND_COMPANY-US200907001223

PATIENT
  Age: 77 Year
  Sex: Female

DRUGS (2)
  1. FORTEO [Suspect]
     Active Substance: TERIPARATIDE
     Indication: OSTEOPOROSIS
     Dosage: 20 UG, QD
     Dates: start: 20090416
  2. FORTEO [Suspect]
     Active Substance: TERIPARATIDE
     Dosage: 20 UG, QD

REACTIONS (13)
  - Bone density decreased [Not Recovered/Not Resolved]
  - Pain in extremity [Unknown]
  - Osteoporosis [Not Recovered/Not Resolved]
  - Flank pain [Unknown]
  - Osteopenia [Not Recovered/Not Resolved]
  - Insomnia [Recovered/Resolved]
  - Insomnia [Unknown]
  - Osteopenia [Unknown]
  - Nervousness [Not Recovered/Not Resolved]
  - Hip fracture [Not Recovered/Not Resolved]
  - Herpes zoster [Unknown]
  - Intentional product use issue [Recovered/Resolved]
  - Muscle spasms [Unknown]

NARRATIVE: CASE EVENT DATE: 20090706
